FAERS Safety Report 5117222-7 (Version None)
Quarter: 2006Q3

REPORT INFORMATION
  Report Type: 
  Country: None (occurrence: None)
  Receive Date: 20060926
  Receipt Date: 20060919
  Transmission Date: 20061208
  Serious: Yes (Death, Hospitalization)
  Sender: FDA-Public Use
  Company Number: 163-21880-06050715

PATIENT
  Age: 79 Year
  Sex: Male

DRUGS (1)
  1. REVLIMID [Suspect]
     Indication: MULTIPLE MYELOMA
     Dosage: 10 MG, DAILY, ORAL, 5 MG, DAILY, ORAL
     Route: 048
     Dates: start: 20060510, end: 20060501

REACTIONS (3)
  - ASTHENIA [None]
  - NEUTROPENIA [None]
  - THROMBOCYTOPENIA [None]
